FAERS Safety Report 17349931 (Version 1)
Quarter: 2020Q1

REPORT INFORMATION
  Report Type: Other
  Country: CN (occurrence: CN)
  Receive Date: 20200130
  Receipt Date: 20200130
  Transmission Date: 20200409
  Serious: Yes (Other)
  Sender: FDA-Public Use
  Company Number: CN-CSPC OUYI PHARMACEUTICAL CO., LTD.-2079588

PATIENT
  Age: 68 Year
  Sex: Female
  Weight: 35 kg

DRUGS (1)
  1. TRAMADOL HYDROCHLORIDE. [Suspect]
     Active Substance: TRAMADOL HYDROCHLORIDE
     Indication: ANALGESIC THERAPY
     Route: 048
     Dates: start: 20180504, end: 20180507

REACTIONS (4)
  - Vomiting [None]
  - Hypokalaemia [None]
  - Epigastric discomfort [None]
  - Nausea [None]

NARRATIVE: CASE EVENT DATE: 20180507
